FAERS Safety Report 9438545 (Version 1)
Quarter: 2013Q3

REPORT INFORMATION
  Report Type: Spontaneous
  Country: US (occurrence: US)
  Receive Date: 20130802
  Receipt Date: 20130802
  Transmission Date: 20140515
  Serious: Yes (Death)
  Sender: FDA-Public Use
  Company Number: US-GLAXOSMITHKLINE-A1035564A

PATIENT
  Age: 51 Year
  Sex: Female

DRUGS (26)
  1. VENTOLIN [Suspect]
     Indication: INTERSTITIAL LUNG DISEASE
     Dates: start: 201110
  2. PRILOSEC [Concomitant]
  3. GLUCOTROL [Concomitant]
  4. CYMBALTA [Concomitant]
  5. SINGULAIR [Concomitant]
  6. PREDNISONE [Concomitant]
  7. NORVASC [Concomitant]
  8. ZESTRIL [Concomitant]
  9. NEURONTIN [Concomitant]
  10. GLUCOPHAGE [Concomitant]
  11. LEVAQUIN [Concomitant]
  12. PERCOCET [Concomitant]
  13. SYMBICORT [Concomitant]
  14. DIFLUCAN [Concomitant]
  15. INSULIN LANTUS [Concomitant]
  16. NOVOLOG [Concomitant]
  17. MUCINEX [Concomitant]
  18. DUONEB [Concomitant]
  19. LOPRESSOR [Concomitant]
  20. LASIX [Concomitant]
  21. XANAX [Concomitant]
  22. LORTAB [Concomitant]
  23. ROBAXIN [Concomitant]
  24. ZOCOR [Concomitant]
  25. LAMISIL [Concomitant]
  26. PAIN MEDICATION [Concomitant]

REACTIONS (1)
  - Interstitial lung disease [Fatal]
